FAERS Safety Report 14906017 (Version 1)
Quarter: 2018Q2

REPORT INFORMATION
  Report Type: Spontaneous
  Country: US (occurrence: US)
  Receive Date: 20180517
  Receipt Date: 20180517
  Transmission Date: 20180711
  Serious: No
  Sender: FDA-Public Use
  Company Number: US-SA-2018SA075509

PATIENT
  Age: 41 Year
  Sex: Female

DRUGS (3)
  1. LANTUS SOLOSTAR [Suspect]
     Active Substance: INSULIN GLARGINE
     Indication: PANCREATITIS
     Dosage: DOSE:19 UNIT(S)
     Route: 051
     Dates: start: 2009
  2. NOVOLOG [Suspect]
     Active Substance: INSULIN ASPART
     Indication: PANCREATITIS
     Route: 065
     Dates: start: 2009
  3. SOLOSTAR [Suspect]
     Active Substance: DEVICE
     Indication: PANCREATITIS
     Dates: start: 2009

REACTIONS (6)
  - Fibromyalgia [Unknown]
  - Visual impairment [Unknown]
  - Product quality issue [Unknown]
  - Product use issue [Unknown]
  - Pancreatic disorder [Unknown]
  - Blood glucose abnormal [Unknown]
